FAERS Safety Report 25679060 (Version 3)
Quarter: 2025Q3

REPORT INFORMATION
  Report Type: Spontaneous
  Country: US (occurrence: EU)
  Receive Date: 20250814
  Receipt Date: 20250905
  Transmission Date: 20251020
  Serious: Yes (Other)
  Sender: Haleon PLC
  Company Number: US-HALEON-2257524

PATIENT
  Age: 20 Year
  Sex: Male

DRUGS (1)
  1. THERAFLU SEVERE COLD RELIEF DAYTIME [Suspect]
     Active Substance: ACETAMINOPHEN\DEXTROMETHORPHAN HYDROBROMIDE
     Indication: Product used for unknown indication
     Dates: start: 20250804

REACTIONS (2)
  - Anaphylactic reaction [Unknown]
  - Product label issue [Unknown]

NARRATIVE: CASE EVENT DATE: 20250804
